FAERS Safety Report 17450277 (Version 1)
Quarter: 2020Q1

REPORT INFORMATION
  Report Type: Spontaneous
  Country: FR (occurrence: FR)
  Receive Date: 20200224
  Receipt Date: 20200224
  Transmission Date: 20200409
  Serious: Yes (Other)
  Sender: FDA-Public Use
  Company Number: FR-SA-2020SA043955

PATIENT
  Age: 28 Year
  Sex: Male

DRUGS (1)
  1. DUPILUMAB [Suspect]
     Active Substance: DUPILUMAB
     Indication: DERMATITIS ATOPIC
     Dosage: UNK

REACTIONS (10)
  - Encephalitis [Recovered/Resolved]
  - Photophobia [Recovered/Resolved]
  - Parotid gland enlargement [Recovered/Resolved]
  - Granuloma [Recovered/Resolved]
  - Headache [Recovered/Resolved]
  - Meningitis [Recovered/Resolved]
  - Confusional state [Recovered/Resolved]
  - Hypergammaglobulinaemia [Recovered/Resolved]
  - Lung infiltration [Recovered/Resolved]
  - Vomiting [Recovered/Resolved]
